FAERS Safety Report 4853186-9 (Version None)
Quarter: 2005Q4

REPORT INFORMATION
  Report Type: 
  Country: None (occurrence: None)
  Receive Date: 20051214
  Receipt Date: 20051206
  Transmission Date: 20060501
  Serious: Yes (Other)
  Sender: FDA-Public Use
  Company Number: HU-ROCHE-427577

PATIENT
  Age: 58 Year
  Sex: Female
  Weight: 71 kg

DRUGS (3)
  1. XENICAL [Suspect]
     Indication: OBESITY
     Route: 048
     Dates: start: 20050725, end: 20051102
  2. PLAVIX [Suspect]
     Route: 048
     Dates: start: 20040615
  3. KREON [Concomitant]
     Route: 048
     Dates: end: 20051015

REACTIONS (4)
  - ABDOMINAL PAIN [None]
  - BLOOD CHOLESTEROL INCREASED [None]
  - HAEMATOCHEZIA [None]
  - STEATORRHOEA [None]
